FAERS Safety Report 9241026 (Version 1)
Quarter: 2013Q1

REPORT INFORMATION
  Report Type: Spontaneous
  Country: US (occurrence: None)
  Receive Date: 20121120
  Receipt Date: 20121120
  Transmission Date: 20140127
  Serious: No
  Sender: FDA-Public Use
  Company Number: 1000039440

PATIENT
  Age: 27 Year
  Sex: Male

DRUGS (3)
  1. VIIBRYD [Suspect]
     Indication: DEPRESSION
     Route: 048
     Dates: start: 20121011
  2. HYDROXYZINE [Suspect]
     Indication: PANIC ATTACK
     Dates: start: 20121011, end: 20121011
  3. SUBOXONE (TEMGESIC-NX) (TEMGESIC-NX) [Concomitant]

REACTIONS (5)
  - Fatigue [None]
  - Somnolence [None]
  - Confusional state [None]
  - Feeling abnormal [None]
  - Irritability [None]
